FAERS Safety Report 4829493-2 (Version None)
Quarter: 2005Q4

REPORT INFORMATION
  Report Type: 
  Country: None (occurrence: None)
  Receive Date: 20051116
  Receipt Date: 20051103
  Transmission Date: 20060501
  Serious: Yes (Hospitalization)
  Sender: FDA-Public Use
  Company Number: PHRM2005FR02911

PATIENT
  Age: 41 Year
  Sex: Female

DRUGS (2)
  1. ZOMETA [Suspect]
     Indication: METASTASES TO BONE
     Route: 042
     Dates: start: 20020101
  2. AREDIA [Suspect]
     Indication: METASTASES TO BONE
     Route: 042
     Dates: start: 20020103, end: 20020901

REACTIONS (5)
  - FISTULA [None]
  - OSTEONECROSIS [None]
  - PAIN IN JAW [None]
  - TOOTH EXTRACTION [None]
  - WOUND DEBRIDEMENT [None]
